FAERS Safety Report 11092450 (Version 1)
Quarter: 2015Q2

REPORT INFORMATION
  Report Type: Spontaneous
  Country: US (occurrence: None)
  Receive Date: 20150505
  Receipt Date: 20150505
  Transmission Date: 20150821
  Serious: No
  Sender: FDA-Public Use
  Company Number: None

PATIENT
  Age: 68 Year
  Sex: Female
  Weight: 87.09 kg

DRUGS (11)
  1. LORATADINE (CLARITIN) [Concomitant]
  2. VIT D 500 UNITS [Concomitant]
  3. VENTOLIN HFA [Suspect]
     Active Substance: ALBUTEROL SULFATE
     Indication: ASTHMA
     Dosage: 90MCG, 4 PUFF, EVERY 6 HOURS, BY MOUTH INHALER
     Route: 048
     Dates: start: 20150315, end: 20150320
  4. PRILOSEC (OMEPRAZOLE) [Concomitant]
     Active Substance: OMEPRAZOLE MAGNESIUM
  5. FLUNISOLIDE (CORTICOSTEROID) [Concomitant]
  6. REPINIROLE HCL [Concomitant]
  7. LEVOTHYROXINE [Concomitant]
     Active Substance: LEVOTHYROXINE
  8. PAROXETIN (PAXIL) [Concomitant]
  9. TRIAM/HCTZ (MAXXIDE) [Concomitant]
  10. NEURONTIN [Concomitant]
     Active Substance: GABAPENTIN
  11. AMBIEN [Concomitant]
     Active Substance: ZOLPIDEM TARTRATE

REACTIONS (3)
  - Oral mucosal exfoliation [None]
  - Product label confusion [None]
  - Candida infection [None]

NARRATIVE: CASE EVENT DATE: 20150315
